FAERS Safety Report 6320162-9 (Version None)
Quarter: 2009Q3

REPORT INFORMATION
  Report Type: 
  Country: None (occurrence: None)
  Receive Date: 20090822
  Receipt Date: 20081104
  Transmission Date: 20100115
  Serious: No
  Sender: FDA-Public Use
  Company Number: US-ABBOTT-08P-163-0483172-00

PATIENT
  Sex: Female
  Weight: 70.37 kg

DRUGS (8)
  1. NIASPAN [Suspect]
     Indication: BLOOD CHOLESTEROL INCREASED
     Dosage: 1000MG DAILY AT BEDTIME
     Dates: start: 20081009
  2. NIASPAN [Suspect]
     Dates: start: 20080909, end: 20081009
  3. ACTOS + MET [Concomitant]
     Indication: DIABETES MELLITUS
     Dosage: 15/500 MG DAILY
  4. OXYBUTYNIN CHLORIDE [Concomitant]
     Indication: BLADDER DISORDER
  5. AMLOD/BENAZ HCL [Concomitant]
     Indication: BLOOD PRESSURE
     Dosage: 5/20 MG DAILY
  6. ASA BABY [Concomitant]
     Indication: DRUG USE FOR UNKNOWN INDICATION
  7. MONTELUKAST [Concomitant]
     Indication: HYPERSENSITIVITY
  8. GUAIFENESIN [Concomitant]
     Indication: RESPIRATORY TRACT CONGESTION
     Dosage: AS REQUIRED

REACTIONS (2)
  - DISCOMFORT [None]
  - FEELING ABNORMAL [None]
